FAERS Safety Report 21984552 (Version 1)
Quarter: 2023Q1

REPORT INFORMATION
  Report Type: Spontaneous
  Country: US (occurrence: None)
  Receive Date: 20230209
  Receipt Date: 20230209
  Transmission Date: 20230418
  Serious: No
  Sender: FDA-Public Use
  Company Number: None

PATIENT
  Age: 84 Year
  Sex: Female
  Weight: 36.65 kg

DRUGS (13)
  1. LORBRENA [Suspect]
     Active Substance: LORLATINIB
     Indication: Lung carcinoma cell type unspecified stage 0
     Dosage: FREQUENCY : DAILY;?
     Route: 048
  2. ACETAMINOPHEN [Concomitant]
  3. ALENDRONATE [Concomitant]
  4. AMLODIPINE [Concomitant]
     Active Substance: AMLODIPINE BESYLATE
  5. ATORVASTATIN [Concomitant]
  6. BRIMONIDINE [Concomitant]
  7. D-CARE GLUCOMETER [Concomitant]
  8. DORZOLAMIDE [Concomitant]
  9. GLIMEPIRIDE [Concomitant]
  10. LATANOPROST [Concomitant]
  11. LOSARTAN POTASSIUM [Concomitant]
  12. METFORMIN HCL [Concomitant]
  13. SITAGLIPTIN [Concomitant]

REACTIONS (2)
  - Hospice care [None]
  - Treatment noncompliance [None]
